FAERS Safety Report 8393649-5 (Version None)
Quarter: 2012Q2

REPORT INFORMATION
  Report Type: 
  Country: None (occurrence: None)
  Receive Date: 20120530
  Receipt Date: 20120522
  Transmission Date: 20120825
  Serious: Yes (Hospitalization)
  Sender: FDA-Public Use
  Company Number: US-BIOGENIDEC-2012BI016018

PATIENT
  Age: 42 Year
  Sex: Female

DRUGS (2)
  1. AVONEX [Suspect]
     Indication: MULTIPLE SCLEROSIS
     Route: 030
     Dates: start: 20030404
  2. AVONEX [Suspect]
     Route: 030
     Dates: start: 20101201

REACTIONS (2)
  - CERVICAL SPINAL STENOSIS [None]
  - INTERVERTEBRAL DISC PROTRUSION [None]
